FAERS Safety Report 9474999 (Version 2)
Quarter: 2013Q3

REPORT INFORMATION
  Report Type: Report from Study
  Country: US (occurrence: US)
  Receive Date: 20130824
  Receipt Date: 20130824
  Transmission Date: 20140515
  Serious: Yes (Death)
  Sender: FDA-Public Use
  Company Number: US-ROCHE-1253017

PATIENT
  Sex: Male

DRUGS (3)
  1. XELODA [Suspect]
     Indication: PRODUCT USED FOR UNKNOWN INDICATION
     Route: 065
  2. AVASTIN [Suspect]
     Indication: COLON CANCER
     Route: 065
     Dates: start: 20130327, end: 20130619
  3. AVASTIN [Suspect]
     Indication: METASTASES TO LIVER

REACTIONS (2)
  - Death [Fatal]
  - Disease progression [Unknown]
